FAERS Safety Report 11335388 (Version 1)
Quarter: 2015Q3

REPORT INFORMATION
  Report Type: Spontaneous
  Country: US (occurrence: None)
  Receive Date: 20150731
  Receipt Date: 20150731
  Transmission Date: 20151125
  Serious: Yes (Disabling)
  Sender: FDA-Public Use
  Company Number: None

PATIENT
  Age: 54 Year
  Sex: Female
  Weight: 97.98 kg

DRUGS (18)
  1. TRAMADOL. [Concomitant]
     Active Substance: TRAMADOL
  2. CLOPIDOGREL [Concomitant]
     Active Substance: CLOPIDOGREL BISULFATE
  3. QUETIAPINE [Concomitant]
     Active Substance: QUETIAPINE
  4. METROPROL [Concomitant]
  5. SPIRONLACT [Concomitant]
  6. SAVELLA [Concomitant]
     Active Substance: MILNACIPRAN HYDROCHLORIDE
  7. CPAP MACHINE [Concomitant]
  8. MELOXICAM. [Concomitant]
     Active Substance: MELOXICAM
  9. GABAPENTIN. [Concomitant]
     Active Substance: GABAPENTIN
  10. 81 ASPIRIN [Concomitant]
  11. ACETAMINOPHEN EXTRA STRENGTH [Concomitant]
     Active Substance: ACETAMINOPHEN
  12. ATORVASTATIN [Suspect]
     Active Substance: ATORVASTATIN
     Indication: DRUG THERAPY
     Dosage: 1 TABLET AT BEDTIME ONCE DAILY TAKEN BY MOUTH
     Route: 048
  13. VITAMIN D2000 [Concomitant]
  14. SERTRALINE [Concomitant]
     Active Substance: SERTRALINE HYDROCHLORIDE
  15. BACLOFEN. [Concomitant]
     Active Substance: BACLOFEN
  16. LISINOPRIL. [Concomitant]
     Active Substance: LISINOPRIL
  17. ALPRAZOLAM. [Concomitant]
     Active Substance: ALPRAZOLAM
  18. OXYCODONE AND ACETAMINOPHEN [Concomitant]
     Active Substance: ACETAMINOPHEN\OXYCODONE\OXYCODONE HYDROCHLORIDE

REACTIONS (15)
  - Myalgia [None]
  - Asthenia [None]
  - Dry mouth [None]
  - Faeces discoloured [None]
  - Weight increased [None]
  - Dry skin [None]
  - Tenderness [None]
  - Fatigue [None]
  - Confusional state [None]
  - Memory impairment [None]
  - Thirst [None]
  - Hunger [None]
  - Vision blurred [None]
  - Swelling [None]
  - Somnolence [None]
